FAERS Safety Report 8809633 (Version 2)
Quarter: 2014Q3

REPORT INFORMATION
  Report Type: Report from Study
  Country: US (occurrence: US)
  Receive Date: 20120926
  Receipt Date: 20140805
  Transmission Date: 20150326
  Serious: Yes (Death, Hospitalization)
  Sender: FDA-Public Use
  Company Number: US-ROCHE-1102470

PATIENT
  Sex: Female
  Weight: 52 kg

DRUGS (1)
  1. AVASTIN [Suspect]
     Active Substance: BEVACIZUMAB
     Indication: MALIGNANT NEOPLASM OF UTERINE ADNEXA
     Route: 042

REACTIONS (5)
  - Atrial fibrillation [Unknown]
  - Death [Fatal]
  - Cough [Unknown]
  - Pulmonary congestion [Unknown]
  - Off label use [Unknown]
